FAERS Safety Report 8204490-8 (Version None)
Quarter: 2012Q1

REPORT INFORMATION
  Report Type: 
  Country: None (occurrence: None)
  Receive Date: 20120313
  Receipt Date: 20120305
  Transmission Date: 20120608
  Serious: Yes (Other)
  Sender: FDA-Public Use
  Company Number: US-US-EMD SERONO, INC.-7013559

PATIENT
  Sex: Female
  Weight: 91 kg

DRUGS (2)
  1. UNSPECIFIED MEDICATIONS [Concomitant]
  2. REBIF [Suspect]
     Indication: MULTIPLE SCLEROSIS
     Route: 058
     Dates: start: 20080608

REACTIONS (3)
  - INJECTION SITE ULCER [None]
  - INJECTION SITE PAIN [None]
  - INJECTION SITE ERYTHEMA [None]
